FAERS Safety Report 4750842-8 (Version None)
Quarter: 2005Q3

REPORT INFORMATION
  Report Type: 
  Country: None (occurrence: None)
  Receive Date: 20050822
  Receipt Date: 20050808
  Transmission Date: 20060218
  Serious: Yes (Other)
  Sender: FDA-Public Use
  Company Number: 2005113396

PATIENT
  Sex: Female

DRUGS (1)
  1. DEPO-PROVERA [Suspect]
     Indication: CONTRACEPTION
     Dosage: 150 MG (150 MG, SINGLE INJECTION, EVERY 90 DAYS), INTRAMUSCULAR
     Route: 030
     Dates: start: 20050622, end: 20050622

REACTIONS (9)
  - BACTERIAL INFECTION [None]
  - CULTURE WOUND POSITIVE [None]
  - GENERAL PHYSICAL HEALTH DETERIORATION [None]
  - GENERALISED OEDEMA [None]
  - IMPAIRED HEALING [None]
  - INJECTION SITE PAIN [None]
  - INJECTION SITE SWELLING [None]
  - RASH PUSTULAR [None]
  - WOUND NECROSIS [None]
